FAERS Safety Report 6379543-X (Version None)
Quarter: 2009Q3

REPORT INFORMATION
  Report Type: 
  Country: None (occurrence: None)
  Receive Date: 20090928
  Receipt Date: 20090918
  Transmission Date: 20100115
  Serious: Yes (Hospitalization)
  Sender: FDA-Public Use
  Company Number: JP-BRISTOL-MYERS SQUIBB COMPANY-14784524

PATIENT
  Age: 40 Year
  Sex: Male
  Weight: 60 kg

DRUGS (8)
  1. ABILIFY [Suspect]
     Indication: SCHIZOPHRENIA
     Dosage: ABILIFY TABLET 12MG
     Route: 048
     Dates: start: 20090525, end: 20090526
  2. QUETIAPINE FUMARATE [Suspect]
     Dates: end: 20090525
  3. TAKEPRON [Concomitant]
  4. AKINETON [Concomitant]
  5. LODOPIN [Concomitant]
  6. CONTOMIN [Concomitant]
  7. THEO-DUR [Concomitant]
  8. KIPRESS [Concomitant]

REACTIONS (2)
  - AGITATION [None]
  - DELUSION OF GRANDEUR [None]
